FAERS Safety Report 9698113 (Version 3)
Quarter: 2014Q1

REPORT INFORMATION
  Report Type: Spontaneous
  Country: JP (occurrence: JP)
  Receive Date: 20131120
  Receipt Date: 20140114
  Transmission Date: 20141002
  Serious: Yes (Other)
  Sender: FDA-Public Use
  Company Number: JP-PFIZER INC-2013303449

PATIENT
  Age: 67 Year
  Sex: Female

DRUGS (4)
  1. CORTRIL [Suspect]
     Indication: MENINGIOMA
     Dosage: 20 MG/DAY
     Route: 048
     Dates: start: 20130419
  2. CORTRIL [Suspect]
     Dosage: 30 MG/DAY
     Route: 048
     Dates: end: 201309
  3. FYSIOSOL [Suspect]
     Dosage: UNK
     Route: 041
  4. DEXAMETHASONE [Suspect]
     Dosage: 1.5 MG/DAY
     Route: 048

REACTIONS (4)
  - Meningioma [Unknown]
  - Brain oedema [Unknown]
  - Pneumonia aspiration [Unknown]
  - Sodium retention [Recovered/Resolved]
